FAERS Safety Report 15461340 (Version 2)
Quarter: 2018Q4

REPORT INFORMATION
  Report Type: Spontaneous
  Country: US (occurrence: US)
  Receive Date: 20181003
  Receipt Date: 20181123
  Transmission Date: 20190204
  Serious: No
  Sender: FDA-Public Use
  Company Number: US-ASTRAZENECA-2018SF19230

PATIENT
  Age: 23349 Day
  Sex: Male
  Weight: 75.3 kg

DRUGS (3)
  1. BYDUREON BCISE [Suspect]
     Active Substance: EXENATIDE
     Indication: TYPE 2 DIABETES MELLITUS
     Route: 058
     Dates: start: 20180912
  2. INSULIN [Concomitant]
     Active Substance: INSULIN NOS
  3. METFORMIN [Concomitant]
     Active Substance: METFORMIN HYDROCHLORIDE

REACTIONS (5)
  - Injection site extravasation [Unknown]
  - Underdose [Unknown]
  - Product storage error [Unknown]
  - Injection site reaction [Unknown]
  - Device malfunction [Unknown]

NARRATIVE: CASE EVENT DATE: 20180912
